FAERS Safety Report 8395304-4 (Version None)
Quarter: 2012Q2

REPORT INFORMATION
  Report Type: 
  Country: None (occurrence: None)
  Receive Date: 20120524
  Receipt Date: 20120514
  Transmission Date: 20120825
  Serious: Yes (Death, Hospitalization)
  Sender: FDA-Public Use
  Company Number: UTC-018118

PATIENT
  Age: 55 Year
  Sex: Female
  Weight: 94.09 kg

DRUGS (4)
  1. REVATIO [Concomitant]
  2. TYVASO [Suspect]
     Indication: COR PULMONALE CHRONIC
     Dosage: 216 MCG (54 MCG, 4 IN 1 D), INHALATION DOSE DECREASED, INHALATION
     Route: 055
     Dates: start: 20111212
  3. TYVASO [Suspect]
     Indication: COR PULMONALE CHRONIC
     Dosage: 216 MCG (54 MCG, 4 IN 1 D), INHALATION DOSE DECREASED, INHALATION
     Route: 055
     Dates: start: 20100823
  4. TRACLEER [Concomitant]

REACTIONS (2)
  - ULCER [None]
  - PERIPHERAL VASCULAR DISORDER [None]
